FAERS Safety Report 19762636 (Version 1)
Quarter: 2021Q3

REPORT INFORMATION
  Report Type: Spontaneous
  Country: SA (occurrence: SA)
  Receive Date: 20210828
  Receipt Date: 20210828
  Transmission Date: 20211014
  Serious: Yes (Other)
  Sender: FDA-Public Use
  Company Number: NVSC2021SA194353

PATIENT

DRUGS (2)
  1. FLUDARABINE PHOSPHATE. [Suspect]
     Active Substance: FLUDARABINE PHOSPHATE
     Indication: ACUTE MYELOID LEUKAEMIA
     Dosage: 30 MG/M2, QD (DAY 1 TO 5), IN 100ML NS OVER 30MIN
     Route: 042
  2. CYTARABINE. [Suspect]
     Active Substance: CYTARABINE
     Indication: ACUTE MYELOID LEUKAEMIA
     Dosage: 2000 MG/M2, QD (DAY 1 TO 5) WITH 500ML NS OVER 4H AFTER COMPLETION OF FLUDARABINE INFUSION
     Route: 042

REACTIONS (15)
  - Tricuspid valve incompetence [Unknown]
  - Pulmonary hypertension [Unknown]
  - Ascites [Unknown]
  - Febrile neutropenia [Unknown]
  - Aspergillus infection [Unknown]
  - Cardiac dysfunction [Unknown]
  - Product use in unapproved indication [Unknown]
  - Chloroma [Unknown]
  - Neutropenia [Unknown]
  - Second primary malignancy [Unknown]
  - Sepsis [Unknown]
  - Hyperbilirubinaemia [Unknown]
  - Fluid retention [Unknown]
  - Transaminases increased [Unknown]
  - Pleural effusion [Unknown]
